FAERS Safety Report 11069570 (Version 1)
Quarter: 2015Q2

REPORT INFORMATION
  Report Type: Spontaneous
  Country: IE (occurrence: IE)
  Receive Date: 20150427
  Receipt Date: 20150427
  Transmission Date: 20150821
  Serious: Yes (Hospitalization, Other)
  Sender: FDA-Public Use
  Company Number: IE-GLAXOSMITHKLINE-IE2015GSK055378

PATIENT
  Age: 78 Year
  Sex: Male

DRUGS (1)
  1. SALBUTAMOL [Suspect]
     Active Substance: ALBUTEROL
     Indication: ASTHMA
     Dosage: MULTIPLE DOSES
     Route: 055

REACTIONS (6)
  - Heart rate increased [Unknown]
  - Lactic acidosis [Unknown]
  - Tachypnoea [Unknown]
  - Hypertension [Unknown]
  - Bronchospasm [Unknown]
  - Blood lactic acid increased [Recovered/Resolved]
